FAERS Safety Report 16943050 (Version 2)
Quarter: 2019Q4

REPORT INFORMATION
  Report Type: Spontaneous
  Country: None (occurrence: US)
  Receive Date: 20191021
  Receipt Date: 20191030
  Transmission Date: 20200122
  Serious: No
  Sender: FDA-Public Use
  Company Number: IN-NEXGEN PHARMA, INC.-2075896

PATIENT

DRUGS (1)
  1. BAC (BUTALBITAL 50MG, ACETAMINOPHEN 300MG AND CAFFEINE 40MG [Suspect]
     Active Substance: ACETAMINOPHEN\BUTALBITAL\CAFFEINE
     Route: 048

REACTIONS (1)
  - Drug ineffective [None]
